FAERS Safety Report 23300753 (Version 1)
Quarter: 2023Q4

REPORT INFORMATION
  Report Type: Spontaneous
  Country: US (occurrence: US)
  Receive Date: 20231215
  Receipt Date: 20231215
  Transmission Date: 20240110
  Serious: No
  Sender: FDA-Public Use
  Company Number: US-Merck Healthcare KGaA-2023492623

PATIENT
  Age: 48 Year
  Sex: Female

DRUGS (4)
  1. MAVENCLAD [Suspect]
     Active Substance: CLADRIBINE
     Indication: Multiple sclerosis
     Dosage: FIRST YEAR FIRST MONTH THERAPY. 2 TABLETS ON DAYS 1 TO 3 AND 1 TABLET ON DAYS 4 AND 5.
     Route: 048
     Dates: start: 20220926, end: 20220930
  2. MAVENCLAD [Suspect]
     Active Substance: CLADRIBINE
     Dosage: FIRST YEAR SECOND MONTH THERAPY. 2 TABLETS ON DAYS 1 TO 3 AND 1 TABLET ON DAYS 4 AND 5.
     Route: 048
     Dates: start: 20221023, end: 20221027
  3. MAVENCLAD [Suspect]
     Active Substance: CLADRIBINE
     Dosage: SECOND YEAR FIRST MONTH THERAPY. 2 TABLETS ON DAYS 1 TO 3 AND 1 TABLET ON DAYS 4 AND 5.
     Route: 048
     Dates: start: 20231024, end: 20231028
  4. MAVENCLAD [Suspect]
     Active Substance: CLADRIBINE
     Dosage: SECOND YEAR SECOND MONTH THERAPY. 2 TABLETS ON DAYS 1 TO 3 AND 1 TABLET ON DAYS 4 AND 5.
     Dates: start: 20231128, end: 20231202

REACTIONS (1)
  - Headache [Recovered/Resolved]

NARRATIVE: CASE EVENT DATE: 20231128
